FAERS Safety Report 5155330-5 (Version None)
Quarter: 2006Q4

REPORT INFORMATION
  Report Type: 
  Country: None (occurrence: None)
  Receive Date: 20061121
  Receipt Date: 20061114
  Transmission Date: 20070319
  Serious: Yes (Hospitalization)
  Sender: FDA-Public Use
  Company Number: US-ROCHE-471444

PATIENT
  Age: 64 Year
  Sex: Female
  Weight: 82.6 kg

DRUGS (8)
  1. BONIVA [Suspect]
     Indication: OSTEOPOROSIS
     Route: 048
     Dates: start: 20060613, end: 20061012
  2. FOSAMAX [Concomitant]
     Indication: OSTEOPOROSIS
     Dates: start: 20050315, end: 20060615
  3. CELEBREX [Concomitant]
     Indication: OSTEOARTHRITIS
  4. DARVOCET [Concomitant]
     Indication: OSTEOARTHRITIS
  5. EFFEXOR [Concomitant]
     Indication: DEPRESSION
  6. ZYRTEC [Concomitant]
     Indication: SEASONAL ALLERGY
  7. TRICOR [Concomitant]
     Indication: LIPIDS INCREASED
  8. LAMISIL [Concomitant]

REACTIONS (1)
  - OSTEONECROSIS [None]
